FAERS Safety Report 9252312 (Version 1)
Quarter: 2013Q2

REPORT INFORMATION
  Report Type: Spontaneous
  Country: FI (occurrence: FI)
  Receive Date: 20130424
  Receipt Date: 20130424
  Transmission Date: 20140414
  Serious: Yes (Death)
  Sender: FDA-Public Use
  Company Number: FI-B.I. PHARMACEUTICALS,INC./RIDGEFIELD-2013-SW-00209SF

PATIENT
  Age: 67 Year
  Sex: Male

DRUGS (14)
  1. TRAJENTA [Suspect]
     Indication: TYPE 2 DIABETES MELLITUS
     Dosage: 5 MG
     Route: 048
     Dates: start: 201206
  2. PANTOPRASOL [Concomitant]
     Dosage: 20 MG
     Route: 048
  3. PRIMASPAN [Concomitant]
     Dosage: 100 MG
     Route: 048
  4. DIGOXIN MITE [Concomitant]
     Route: 048
  5. FURESIS [Concomitant]
     Dosage: 250 MG
     Route: 048
  6. SPIRONOLAKTON [Concomitant]
     Dosage: 12.5 MG
  7. ORLOC [Concomitant]
     Dosage: 10 MG
  8. CARDACE [Concomitant]
     Dosage: 2.5 MG
  9. ATORVASTATIN [Concomitant]
     Dosage: 20 MG
  10. APURIN [Concomitant]
     Dosage: 100 MG
  11. KETIPINOR [Concomitant]
     Dosage: 25 MG
  12. NORITREN [Concomitant]
     Dosage: 50 MG
  13. OPAMOX [Concomitant]
     Dosage: 15-30 MG WHEN NEEDED
  14. ZOPINOX [Concomitant]
     Dosage: 7.5 MG

REACTIONS (1)
  - Death [Fatal]
